FAERS Safety Report 21698105 (Version 1)
Quarter: 2022Q4

REPORT INFORMATION
  Report Type: Spontaneous
  Country: US (occurrence: US)
  Receive Date: 20221208
  Receipt Date: 20221208
  Transmission Date: 20230113
  Serious: Yes (Other)
  Sender: FDA-Public Use
  Company Number: US-EyePoint Pharmaceuticals, Inc.-US-EYP-22-00104

PATIENT
  Age: 57 Year
  Sex: Male

DRUGS (3)
  1. YUTIQ [Suspect]
     Active Substance: FLUOCINOLONE ACETONIDE
     Indication: Product used for unknown indication
     Route: 031
     Dates: start: 20220209, end: 20220209
  2. YUTIQ [Suspect]
     Active Substance: FLUOCINOLONE ACETONIDE
     Route: 031
     Dates: start: 20220214, end: 20220214
  3. RETISERT [Concomitant]
     Active Substance: FLUOCINOLONE ACETONIDE
     Indication: Product used for unknown indication
     Dosage: 2 IMPLANTS IN BOTH EYES/OU
     Route: 031

REACTIONS (4)
  - Accident [Unknown]
  - Device loosening [Unknown]
  - Device issue [Unknown]
  - Product dose omission issue [Unknown]

NARRATIVE: CASE EVENT DATE: 20220209
